FAERS Safety Report 9478994 (Version 1)
Quarter: 2013Q3

REPORT INFORMATION
  Report Type: Spontaneous
  Country: GB (occurrence: GB)
  Receive Date: 20130827
  Receipt Date: 20130827
  Transmission Date: 20140515
  Serious: Yes (Other)
  Sender: FDA-Public Use
  Company Number: GB-TEVA-428137ISR

PATIENT
  Age: 43 Year
  Sex: Female
  Weight: 45 kg

DRUGS (23)
  1. AMITRIPTYLINE [Suspect]
     Dates: start: 20130805
  2. CHLORDIAZEPOXIDE [Concomitant]
     Dates: start: 20130425, end: 20130531
  3. THIAMINE [Concomitant]
     Dates: start: 20130425, end: 20130523
  4. VITAMIN B SUBSTANCES [Concomitant]
     Dates: start: 20130425, end: 20130523
  5. CO-CODAMOL [Concomitant]
     Dates: start: 20130513, end: 20130520
  6. IBUPROFEN [Concomitant]
     Dates: start: 20130514
  7. CREON [Concomitant]
     Dates: start: 20130514, end: 20130703
  8. SENNA [Concomitant]
     Dates: start: 20130520
  9. BENDROFLUMETHIAZIDE [Concomitant]
     Dates: start: 20130523
  10. CITALOPRAM [Concomitant]
     Dates: start: 20130523, end: 20130728
  11. CLENIL MODULITE [Concomitant]
     Dates: start: 20130604
  12. PREDNISOLONE [Concomitant]
     Dates: start: 20130604, end: 20130609
  13. SALAMOL [Concomitant]
     Dates: start: 20130604, end: 20130702
  14. SALAMOL [Concomitant]
     Dates: start: 20130801
  15. VOLUMATIC [Concomitant]
     Dates: start: 20130604, end: 20130616
  16. DOXYCYCLINE [Concomitant]
     Dates: start: 20130606, end: 20130613
  17. CARBOMER 980 [Concomitant]
     Dates: start: 20130618, end: 20130619
  18. CARBOMER 980 [Concomitant]
     Dates: start: 20130724, end: 20130725
  19. CHLORAMPHENICOL [Concomitant]
     Dates: start: 20130618, end: 20130623
  20. CHLORAMPHENICOL [Concomitant]
     Dates: start: 20130724, end: 20130729
  21. NAPROXEN [Concomitant]
     Dates: start: 20130709
  22. PARACETAMOL [Concomitant]
     Dates: start: 20130709, end: 20130803
  23. LORATADINE [Concomitant]
     Dates: start: 20130801, end: 20130808

REACTIONS (2)
  - Restless legs syndrome [Unknown]
  - Pruritus [Unknown]
